FAERS Safety Report 4698402-1 (Version None)
Quarter: 2005Q2

REPORT INFORMATION
  Report Type: 
  Country: None (occurrence: None)
  Receive Date: 20050621
  Receipt Date: 20050608
  Transmission Date: 20051028
  Serious: Yes (Hospitalization)
  Sender: FDA-Public Use
  Company Number: 215203

PATIENT
  Age: 14 Year
  Sex: Female

DRUGS (1)
  1. NUTROPIN [Suspect]
     Indication: TURNER'S SYNDROME
     Dosage: SUBCUTANEOUS
     Route: 058
     Dates: start: 19991101, end: 20050101

REACTIONS (4)
  - ANXIETY DISORDER [None]
  - DIZZINESS [None]
  - LETHARGY [None]
  - NUCLEAR MAGNETIC RESONANCE IMAGING ABNORMAL [None]
